FAERS Safety Report 18187336 (Version 1)
Quarter: 2020Q3

REPORT INFORMATION
  Report Type: Spontaneous
  Country: DE (occurrence: DE)
  Receive Date: 20200824
  Receipt Date: 20200824
  Transmission Date: 20201103
  Serious: Yes (Hospitalization)
  Sender: FDA-Public Use
  Company Number: DE-TEVA-2020-DE-1816943

PATIENT
  Age: 70 Year
  Sex: Female
  Weight: 70 kg

DRUGS (5)
  1. CINNARIZIN/DIMENHYDRINAT [Concomitant]
     Dosage: 20 | 40 MG, AS REQUIRED
  2. BISOPROLOL [Concomitant]
     Active Substance: BISOPROLOL
     Dosage: 10 MILLIGRAM DAILY; 1?0?0?0
  3. METAMIZOL [Concomitant]
     Active Substance: METAMIZOLE SODIUM
     Dosage: 500 MG, AS NEEDED
  4. QUETIAPIN [Suspect]
     Active Substance: QUETIAPINE
     Dosage: 25 MILLIGRAM DAILY; 0?0?0?1
  5. EUTHYROX 200MIKROGRAMM [Concomitant]
     Dosage: 200 MICROGRAM DAILY; 1?0?0?0

REACTIONS (4)
  - Tongue biting [Unknown]
  - Dizziness [Unknown]
  - Urinary incontinence [Unknown]
  - Syncope [Unknown]
